FAERS Safety Report 8555547-3 (Version None)
Quarter: 2012Q3

REPORT INFORMATION
  Report Type: 
  Country: None (occurrence: None)
  Receive Date: 20120731
  Receipt Date: 20110825
  Transmission Date: 20120928
  Serious: No
  Sender: FDA-Public Use
  Company Number: US-ASTRAZENECA-2010SE21300

PATIENT
  Age: 29 Year
  Sex: Female
  Weight: 68 kg

DRUGS (6)
  1. SEROQUEL XR [Suspect]
     Indication: BIPOLAR DISORDER
     Route: 048
     Dates: start: 20090601, end: 20100901
  2. SEROQUEL XR [Suspect]
     Route: 048
     Dates: start: 20090601
  3. LAMOTRIGINE [Suspect]
     Route: 065
  4. PROZAC [Concomitant]
  5. LAMOTRIGINE [Suspect]
     Route: 065
  6. MEDICAL MARIJUANA [Concomitant]

REACTIONS (17)
  - PYREXIA [None]
  - PARAESTHESIA [None]
  - CARDIOVASCULAR INSUFFICIENCY [None]
  - ABDOMINAL PAIN UPPER [None]
  - MUSCLE SPASMS [None]
  - DIZZINESS [None]
  - WRONG TECHNIQUE IN DRUG USAGE PROCESS [None]
  - MUSCULOSKELETAL STIFFNESS [None]
  - TACHYPHRENIA [None]
  - HYPERSENSITIVITY [None]
  - NAUSEA [None]
  - RASH [None]
  - MALAISE [None]
  - ANXIETY [None]
  - TREMOR [None]
  - DRUG DOSE OMISSION [None]
  - WITHDRAWAL SYNDROME [None]
